FAERS Safety Report 5952274-3 (Version None)
Quarter: 2008Q4

REPORT INFORMATION
  Report Type: 
  Country: None (occurrence: None)
  Receive Date: 20081113
  Receipt Date: 20081107
  Transmission Date: 20090506
  Serious: Yes (Hospitalization)
  Sender: FDA-Public Use
  Company Number: US-GILEAD-2008-0018792

PATIENT
  Sex: Male
  Weight: 55.388 kg

DRUGS (10)
  1. LETAIRIS [Suspect]
     Indication: PULMONARY ARTERIAL HYPERTENSION
     Route: 048
     Dates: start: 20081016
  2. LETAIRIS [Suspect]
     Route: 048
     Dates: start: 20081003, end: 20081016
  3. LETAIRIS [Suspect]
     Route: 048
     Dates: start: 20080827, end: 20081003
  4. REVATIO [Concomitant]
     Indication: PULMONARY ARTERIAL HYPERTENSION
     Dates: start: 20080801
  5. LISINOPRIL [Concomitant]
     Indication: HYPERTENSION
     Dates: start: 20080801
  6. COLCHICINE [Concomitant]
     Indication: SCLERODERMA
     Dates: start: 20080601
  7. SYNTHROID [Concomitant]
     Indication: HYPOTHYROIDISM
  8. REGLAN [Concomitant]
     Indication: NAUSEA
     Dates: start: 20081007
  9. LOMOTIL [Concomitant]
     Indication: DIARRHOEA
     Dates: start: 20081006
  10. NEXIUM [Concomitant]
     Indication: GASTROOESOPHAGEAL REFLUX DISEASE

REACTIONS (2)
  - DYSPNOEA [None]
  - PERICARDIAL EFFUSION [None]
